APPROVED DRUG PRODUCT: PRIMSOL
Active Ingredient: TRIMETHOPRIM HYDROCHLORIDE
Strength: EQ 25MG BASE/5ML
Dosage Form/Route: SOLUTION;ORAL
Application: N074374 | Product #001
Applicant: PANGEA PHARMACEUTICALS LLC
Approved: Jun 23, 1995 | RLD: No | RS: No | Type: DISCN